FAERS Safety Report 6385639-9 (Version None)
Quarter: 2009Q4

REPORT INFORMATION
  Report Type: 
  Country: None (occurrence: None)
  Receive Date: 20091002
  Receipt Date: 20081013
  Transmission Date: 20100525
  Serious: No
  Sender: FDA-Public Use
  Company Number: US-ASTRAZENECA-2008UW22384

PATIENT
  Age: 66 Year
  Sex: Female
  Weight: 136.1 kg

DRUGS (4)
  1. ARIMIDEX [Suspect]
     Indication: BREAST CANCER
     Route: 048
     Dates: start: 20040101
  2. FLUID PILLS [Concomitant]
  3. SUGAR PILLS [Concomitant]
     Dosage: MORNING AND NIGHT
  4. WELLBUTRIN [Concomitant]

REACTIONS (2)
  - HOT FLUSH [None]
  - MELANOCYTIC NAEVUS [None]
